FAERS Safety Report 8728765 (Version 2)
Quarter: 2012Q4

REPORT INFORMATION
  Report Type: 
  Country: JP (occurrence: JP)
  Receive Date: 20120817
  Receipt Date: 20120912
  Transmission Date: 20130627
  Serious: Yes (Life-Threatening, Other)
  Sender: FDA-Public Use
  Company Number: JP-B.I. PHARMACEUTICALS,INC./RIDGEFIELD-2012-EU-04045GD

PATIENT
  Age: 70 None
  Sex: Female
  Weight: 43 kg

DRUGS (2)
  1. DABIGATRAN ETEXILATE [Suspect]
     Indication: ATRIAL FIBRILLATION
     Dosage: just after supper took one dose only of 110 mg.
     Route: 048
     Dates: start: 20110613
  2. CIFENLINE [Suspect]
     Indication: ATRIAL FIBRILLATION
     Dosage: 50 mg
     Route: 048
     Dates: start: 20110613

REACTIONS (4)
  - Agranulocytosis [Recovered/Resolved]
  - Normochromic normocytic anaemia [Recovered/Resolved]
  - Feeling cold [Recovered/Resolved]
  - Malaise [Recovered/Resolved]
